FAERS Safety Report 13657709 (Version 3)
Quarter: 2017Q3

REPORT INFORMATION
  Report Type: Spontaneous
  Country: ES (occurrence: ES)
  Receive Date: 20170615
  Receipt Date: 20170701
  Transmission Date: 20171127
  Serious: Yes (Other)
  Sender: FDA-Public Use
  Company Number: ES-AMGEN-ESPSP2017091590

PATIENT
  Age: 49 Year
  Sex: Male

DRUGS (6)
  1. ENBREL [Suspect]
     Active Substance: ETANERCEPT
     Dosage: 50 MG, WEEKLY
     Route: 058
     Dates: start: 20081112, end: 20161006
  2. ADALIMUMAB [Suspect]
     Active Substance: ADALIMUMAB
     Dosage: 40 MG, UNK
     Route: 058
     Dates: end: 20170531
  3. ENBREL [Suspect]
     Active Substance: ETANERCEPT
     Indication: PSORIASIS
     Dosage: 50 MG, 2X/WEEK (DURING 3 MONTHS)
     Route: 058
     Dates: start: 20080812, end: 20081112
  4. ADALIMUMAB [Suspect]
     Active Substance: ADALIMUMAB
     Dosage: 80 MG, UNK (2 DOSES OF 40MG DURING THE FIRST WEEK OF TREATMENT)
     Route: 058
     Dates: start: 20161006
  5. ADALIMUMAB [Suspect]
     Active Substance: ADALIMUMAB
     Dosage: 40 MG, UNK
     Route: 058
     Dates: start: 20161014
  6. ADALIMUMAB [Suspect]
     Active Substance: ADALIMUMAB
     Indication: PSORIASIS
     Dosage: UNK
     Route: 065
     Dates: start: 201610

REACTIONS (7)
  - Lymphangiectasia [Unknown]
  - Granuloma annulare [Unknown]
  - Lymphangioma [Unknown]
  - Treatment failure [Recovered/Resolved]
  - Kaposi^s sarcoma [Unknown]
  - Kaposi^s sarcoma [Not Recovered/Not Resolved]
  - Human herpes virus 8 test positive [Unknown]

NARRATIVE: CASE EVENT DATE: 201302
